FAERS Safety Report 4283710-9 (Version None)
Quarter: 2004Q1

REPORT INFORMATION
  Report Type: 
  Country: None (occurrence: None)
  Receive Date: 20040202
  Receipt Date: 20040127
  Transmission Date: 20041129
  Serious: Yes (Other)
  Sender: FDA-Public Use
  Company Number: WAES 0401GBR00237

PATIENT
  Age: 63 Year
  Sex: Male

DRUGS (7)
  1. ALLOPURINOL [Concomitant]
     Dates: start: 20000606
  2. CLOPIDOGREL BISULFATE [Concomitant]
     Dates: start: 20010727
  3. ZETIA [Suspect]
     Indication: HYPERCHOLESTEROLAEMIA
     Route: 048
     Dates: start: 20031002, end: 20031103
  4. INFLUENZA VIRUS VACCINE (UNSPECIFIED) [Concomitant]
     Dates: start: 20031015, end: 20031015
  5. LANSOPRAZOLE [Concomitant]
     Dates: start: 20030728
  6. LISINOPRIL [Concomitant]
     Dates: start: 20010213
  7. PREDNISOLONE [Concomitant]
     Dates: start: 20021002

REACTIONS (1)
  - GASTRIC HAEMORRHAGE [None]
